FAERS Safety Report 5004831-9 (Version None)
Quarter: 2006Q2

REPORT INFORMATION
  Report Type: 
  Country: None (occurrence: None)
  Receive Date: 20060517
  Receipt Date: 20050915
  Transmission Date: 20061013
  Serious: Yes (Hospitalization)
  Sender: FDA-Public Use
  Company Number: US-MERCK-0509USA02476

PATIENT
  Age: 68 Year
  Sex: Male
  Weight: 66 kg

DRUGS (4)
  1. VIOXX [Suspect]
     Indication: OSTEOARTHRITIS
     Route: 048
     Dates: start: 19990101, end: 20040901
  2. ASPIRIN [Concomitant]
     Route: 065
     Dates: start: 19900101, end: 20030101
  3. DARVOCET-N 100 [Concomitant]
     Route: 065
     Dates: start: 19900101
  4. TYLOX [Concomitant]
     Route: 065

REACTIONS (30)
  - ABDOMINAL PAIN UPPER [None]
  - AREFLEXIA [None]
  - BALANCE DISORDER [None]
  - BLOOD CHOLESTEROL INCREASED [None]
  - CEREBROVASCULAR ACCIDENT [None]
  - COORDINATION ABNORMAL [None]
  - DEPRESSION [None]
  - DIARRHOEA [None]
  - DIZZINESS [None]
  - DRUG HYPERSENSITIVITY [None]
  - ELECTROCARDIOGRAM QT PROLONGED [None]
  - EMOTIONAL DISORDER [None]
  - FACIAL PALSY [None]
  - FLATULENCE [None]
  - HYPERLIPIDAEMIA [None]
  - HYPERTENSION [None]
  - HYPOKALAEMIA [None]
  - LACUNAR INFARCTION [None]
  - LOW DENSITY LIPOPROTEIN INCREASED [None]
  - MITRAL VALVE INCOMPETENCE [None]
  - NAUSEA [None]
  - RED CELL DISTRIBUTION WIDTH DECREASED [None]
  - SINUS BRADYCARDIA [None]
  - SKIN LESION [None]
  - TEARFULNESS [None]
  - TRICUSPID VALVE INCOMPETENCE [None]
  - VENTRICULAR EXTRASYSTOLES [None]
  - VERTEBROBASILAR INSUFFICIENCY [None]
  - VERTIGO [None]
  - VOMITING [None]
